FAERS Safety Report 6532626-3 (Version None)
Quarter: 2010Q1

REPORT INFORMATION
  Report Type: 
  Country: None (occurrence: None)
  Receive Date: 20100111
  Receipt Date: 20091002
  Transmission Date: 20100710
  Serious: Yes (Other)
  Sender: FDA-Public Use
  Company Number: IE-CELGENEUS-229-20484-09121735

PATIENT
  Sex: Female
  Weight: 2.2 kg

DRUGS (4)
  1. INNOHEP [Suspect]
     Indication: PROPHYLAXIS
     Route: 064
     Dates: start: 20060602, end: 20070214
  2. FLOXACILLIN SODIUM [Concomitant]
     Indication: DRUG USE FOR UNKNOWN INDICATION
     Route: 064
     Dates: start: 20070212, end: 20070214
  3. DEXAMETHASONE [Concomitant]
     Indication: DRUG USE FOR UNKNOWN INDICATION
     Route: 064
     Dates: start: 20070116, end: 20070116
  4. AMOXICILLIN SODIUM W/CLAVULANATE POTASSIUM [Concomitant]
     Indication: DRUG USE FOR UNKNOWN INDICATION
     Route: 064
     Dates: start: 20070131, end: 20070205

REACTIONS (2)
  - DRUG EXPOSURE DURING PREGNANCY [None]
  - PREMATURE BABY [None]
